FAERS Safety Report 16821786 (Version 1)
Quarter: 2019Q3

REPORT INFORMATION
  Report Type: Spontaneous
  Country: US (occurrence: US)
  Receive Date: 20190918
  Receipt Date: 20190918
  Transmission Date: 20191005
  Serious: No
  Sender: FDA-Public Use
  Company Number: US-APOTEX-2019AP017156

PATIENT

DRUGS (1)
  1. PAROXETINE. [Suspect]
     Active Substance: PAROXETINE
     Indication: HOT FLUSH
     Dosage: UNK
     Route: 065

REACTIONS (2)
  - Gluten sensitivity [Recovered/Resolved]
  - Manufacturing materials issue [Unknown]
